FAERS Safety Report 11441300 (Version 1)
Quarter: 2015Q3

REPORT INFORMATION
  Report Type: Spontaneous
  Country: US (occurrence: US)
  Receive Date: 20150821
  Receipt Date: 20150821
  Transmission Date: 20151125
  Serious: Yes (Other)
  Sender: FDA-Public Use
  Company Number: US-ELI_LILLY_AND_COMPANY-US200805002227

PATIENT
  Sex: Female

DRUGS (7)
  1. CYMBALTA [Suspect]
     Active Substance: DULOXETINE HYDROCHLORIDE
     Dosage: 60 MG, UNK
  2. DURAGESIC [Concomitant]
     Active Substance: FENTANYL
  3. ELAVIL [Concomitant]
     Active Substance: AMITRIPTYLINE HYDROCHLORIDE
  4. SERAX [Concomitant]
     Active Substance: OXAZEPAM
  5. OXYMORPHONE [Concomitant]
     Active Substance: OXYMORPHONE
  6. LYRICA [Concomitant]
     Active Substance: PREGABALIN
  7. METHOTREXATE [Concomitant]
     Active Substance: METHOTREXATE

REACTIONS (1)
  - Suicide attempt [Unknown]
